FAERS Safety Report 9336957 (Version 5)
Quarter: 2014Q3

REPORT INFORMATION
  Report Type: Report from Study
  Country: JP (occurrence: JP)
  Receive Date: 20130607
  Receipt Date: 20140716
  Transmission Date: 20150326
  Serious: Yes (Death, Life-Threatening)
  Sender: FDA-Public Use
  Company Number: JP-PFIZER INC-2013085240

PATIENT
  Age: 78 Year
  Sex: Female
  Weight: 45.8 kg

DRUGS (13)
  1. RINDERON V [Concomitant]
     Active Substance: BETAMETHASONE VALERATE
     Dosage: 2 MG, 1X/DAY
     Route: 048
     Dates: start: 20130213, end: 20130305
  2. XYLOCAINE [Concomitant]
     Active Substance: LIDOCAINE HYDROCHLORIDE
     Dosage: UNK
     Route: 048
     Dates: start: 20130208, end: 20130305
  3. ETIZOLAM [Concomitant]
     Active Substance: ETIZOLAM
     Dosage: 0.5 MG, 1X/DAY
     Route: 048
     Dates: end: 20130305
  4. GLYCERIN. [Concomitant]
     Active Substance: GLYCERIN
     Dosage: UNK
     Route: 061
     Dates: start: 20130208, end: 20130305
  5. MAGMITT [Concomitant]
     Active Substance: MAGNESIUM OXIDE
     Dosage: 330 MG, 1X/DAY
     Route: 048
     Dates: end: 20130305
  6. MEVALOTIN [Concomitant]
     Active Substance: PRAVASTATIN SODIUM
     Dosage: 10 MG, 1X/DAY
     Route: 048
     Dates: end: 20130305
  7. GASTER [Concomitant]
     Active Substance: FAMOTIDINE
     Dosage: 10 MG, 2X/DAY
     Route: 048
     Dates: end: 20130305
  8. HACHIAZULE [Concomitant]
     Dosage: 2 G, 3X/DAY
     Route: 048
     Dates: end: 20130305
  9. XALKORI [Suspect]
     Active Substance: CRIZOTINIB
     Dosage: 250 MG, 2X/DAY
     Route: 048
     Dates: start: 20130210, end: 20130305
  10. SATO SALBE [Concomitant]
     Dosage: UNK
     Route: 061
     Dates: start: 20130212, end: 20130305
  11. HIRUDOID [Concomitant]
     Active Substance: GLYCOSAMINOGLYCANS
     Dosage: UNK
     Route: 061
     Dates: end: 20130305
  12. XALKORI [Suspect]
     Active Substance: CRIZOTINIB
     Indication: NON-SMALL CELL LUNG CANCER
     Dosage: 250 MG, 1X/DAY
     Route: 048
     Dates: start: 20130206, end: 20130209
  13. RINDERON V [Concomitant]
     Active Substance: BETAMETHASONE VALERATE
     Dosage: 3 MG, 1X/DAY
     Route: 048
     Dates: start: 20130207, end: 20130212

REACTIONS (8)
  - Cardiac failure [Fatal]
  - Disease progression [Fatal]
  - Non-small cell lung cancer [Fatal]
  - Embolism [Fatal]
  - Dyspnoea [Fatal]
  - Anaemia [Fatal]
  - Nausea [Not Recovered/Not Resolved]
  - Respiratory failure [Fatal]

NARRATIVE: CASE EVENT DATE: 20130207
